FAERS Safety Report 8255986-4 (Version None)
Quarter: 2012Q2

REPORT INFORMATION
  Report Type: 
  Country: None (occurrence: None)
  Receive Date: 20120403
  Receipt Date: 20120319
  Transmission Date: 20120825
  Serious: Yes (Hospitalization)
  Sender: FDA-Public Use
  Company Number: US-ROCHE-1051612

PATIENT
  Age: 58 Year
  Sex: Female
  Weight: 59.1 kg

DRUGS (6)
  1. AVASTIN [Suspect]
     Indication: MALIGNANT PERITONEAL NEOPLASM
     Dosage: OVER 30-90 MIN ON DAY 1, BEGINNING WITH CYCLE 2, CYCLE 1-6
     Route: 042
  2. PACLITAXEL [Suspect]
     Indication: MALIGNANT PERITONEAL NEOPLASM
     Route: 033
  3. CISPLATIN [Suspect]
     Indication: MALIGNANT PERITONEAL NEOPLASM
     Dosage: ON DAY 2, RECENT DOSE ON 15 JUL 2010, TOTAL DOSE ADMINISTERED THIS COURSE NO 22: 120 MG
     Route: 033
     Dates: start: 20100513
  4. PACLITAXEL [Suspect]
     Dosage: TOTAL DOSE ADMINISTERED THIS COURSE NO 22: 130 MG
     Route: 042
  5. AVASTIN [Suspect]
     Dosage: OVER 30-90 MINS ON DAY 1 (CYCLE 7-22), TOTAL DOSE ADMINISTERED THIS COURSE NO 22: 876 MG
  6. CARBOPLATIN [Suspect]
     Indication: MALIGNANT PERITONEAL NEOPLASM
     Dosage: RECENT DOSE ON 26 AUG 2010,
     Route: 065

REACTIONS (1)
  - SMALL INTESTINAL OBSTRUCTION [None]
